FAERS Safety Report 18546936 (Version 2)
Quarter: 2021Q1

REPORT INFORMATION
  Report Type: Report from Study
  Country: US (occurrence: US)
  Receive Date: 20201125
  Receipt Date: 20210202
  Transmission Date: 20210419
  Serious: Yes (Hospitalization)
  Sender: FDA-Public Use
  Company Number: US-MYLANLABS-2020M1097423

PATIENT
  Age: 57 Year
  Sex: Male
  Weight: 85.7 kg

DRUGS (9)
  1. DIGOX [Concomitant]
     Active Substance: DIGOXIN
     Dosage: UNK
  2. POTASSIUM CHLORIDE. [Concomitant]
     Active Substance: POTASSIUM CHLORIDE
     Dosage: UNK
  3. CLOZAPINE. [Suspect]
     Active Substance: CLOZAPINE
     Dosage: 150 MILLIGRAM, HS
     Route: 048
  4. METOPROLOL. [Concomitant]
     Active Substance: METOPROLOL
     Dosage: UNK
  5. PRAVASTATIN. [Concomitant]
     Active Substance: PRAVASTATIN
     Dosage: UNK
  6. FUROSEMIDE. [Concomitant]
     Active Substance: FUROSEMIDE
     Dosage: UNK
  7. ENALAPRIL [Concomitant]
     Active Substance: ENALAPRIL
     Dosage: UNK
  8. TOPIRAMATE. [Concomitant]
     Active Substance: TOPIRAMATE
     Dosage: UNK
  9. CLOZAPINE. [Suspect]
     Active Substance: CLOZAPINE
     Indication: SCHIZOPHRENIA
     Dosage: 100 MILLIGRAM, AM
     Route: 048

REACTIONS (2)
  - Small intestinal obstruction [Recovered/Resolved]
  - Neutrophil count increased [Unknown]

NARRATIVE: CASE EVENT DATE: 20201120
